FAERS Safety Report 12979646 (Version 1)
Quarter: 2016Q4

REPORT INFORMATION
  Report Type: Spontaneous
  Country: CH (occurrence: CH)
  Receive Date: 20161128
  Receipt Date: 20161128
  Transmission Date: 20170207
  Serious: Yes (Hospitalization, Other)
  Sender: FDA-Public Use
  Company Number: CH-ELI_LILLY_AND_COMPANY-CH201611006944

PATIENT
  Age: 49 Year
  Sex: Female

DRUGS (4)
  1. FLUOXETINE [Suspect]
     Active Substance: FLUOXETINE HYDROCHLORIDE
     Indication: PRODUCT USED FOR UNKNOWN INDICATION
     Dosage: 40 MG, QD
     Route: 048
  2. ZYPREXA [Suspect]
     Active Substance: OLANZAPINE
     Indication: PRODUCT USED FOR UNKNOWN INDICATION
     Dosage: 15 MG, QD
     Route: 048
     Dates: end: 201610
  3. XANAX [Suspect]
     Active Substance: ALPRAZOLAM
     Indication: PRODUCT USED FOR UNKNOWN INDICATION
     Dosage: 1 MG, BID
     Route: 048
     Dates: end: 201610
  4. LORAMET [Suspect]
     Active Substance: LORMETAZEPAM
     Indication: PRODUCT USED FOR UNKNOWN INDICATION
     Dosage: 2 MG, QD
     Route: 048
     Dates: end: 201610

REACTIONS (9)
  - Drug abuse [Recovered/Resolved]
  - Suicidal ideation [Unknown]
  - Heart rate increased [Unknown]
  - Altered state of consciousness [Recovered/Resolved]
  - Hypoventilation [Recovered/Resolved]
  - Blood pressure systolic increased [Unknown]
  - Suicide attempt [Recovered/Resolved]
  - Blood creatine phosphokinase increased [Recovering/Resolving]
  - Respiratory acidosis [Unknown]

NARRATIVE: CASE EVENT DATE: 20161003
